FAERS Safety Report 9146070 (Version 1)
Quarter: 2013Q1

REPORT INFORMATION
  Report Type: Spontaneous
  Country: US (occurrence: None)
  Receive Date: 20130219
  Receipt Date: 20130219
  Transmission Date: 20140127
  Serious: Yes (Death)
  Sender: FDA-Public Use
  Company Number: 2013-00368

PATIENT
  Age: 48 Year
  Sex: Male

DRUGS (1)
  1. AMLODIPINE (UNKNOWN) [Suspect]

REACTIONS (1)
  - Completed suicide [None]
